FAERS Safety Report 10358642 (Version 4)
Quarter: 2014Q4

REPORT INFORMATION
  Report Type: Spontaneous
  Country: JP (occurrence: JP)
  Receive Date: 20140803
  Receipt Date: 20141120
  Transmission Date: 20150528
  Serious: Yes (Death, Life-Threatening, Other)
  Sender: FDA-Public Use
  Company Number: JP-009507513-1406JPN013352

PATIENT
  Age: 63 Year
  Sex: Female
  Weight: 62 kg

DRUGS (13)
  1. ANTINEOPLASTIC (UNSPECIFIED) [Concomitant]
     Active Substance: UNSPECIFIED INGREDIENT
     Indication: GASTRIC CANCER RECURRENT
  2. CANCIDAS [Suspect]
     Active Substance: CASPOFUNGIN ACETATE
     Indication: SYSTEMIC CANDIDA
     Dosage: 70 MG, ONCE
     Route: 041
     Dates: start: 20140611, end: 20140611
  3. LACTULOSE. [Concomitant]
     Active Substance: LACTULOSE
     Indication: HEPATITIS FULMINANT
     Dosage: 120 ML, TID, SOL
     Route: 048
     Dates: start: 20140611
  4. KANAMYCIN [Concomitant]
     Active Substance: KANAMYCIN\KANAMYCIN A SULFATE
     Indication: HEPATITIS FULMINANT
     Dosage: 500 MG, QID
     Route: 048
     Dates: start: 20140611
  5. PREDONINE [Concomitant]
     Active Substance: PREDNISOLONE\PREDNISOLONE ACETATE\PREDNISOLONE SODIUM SUCCINATE
     Indication: HEPATITIS FULMINANT
     Dosage: 20 MG, BID
     Route: 048
     Dates: start: 20140612
  6. URSO [Concomitant]
     Active Substance: URSODIOL
     Indication: HEPATITIS FULMINANT
     Dosage: 100 MG, TID
     Route: 048
     Dates: start: 20140612
  7. CANCIDAS [Suspect]
     Active Substance: CASPOFUNGIN ACETATE
     Indication: SYSTEMIC CANDIDA
     Dosage: 35 MG, QD
     Route: 041
     Dates: start: 20140612, end: 20140616
  8. FLAGYL [Concomitant]
     Active Substance: METRONIDAZOLE\METRONIDAZOLE HYDROCHLORIDE
     Indication: HEPATITIS FULMINANT
     Dosage: 500 MG, QID
     Route: 048
     Dates: start: 20140611
  9. TAURINE [Concomitant]
     Active Substance: TAURINE
     Indication: HEPATITIS FULMINANT
     Dosage: 1 G, TID
     Route: 048
     Dates: start: 20140612
  10. ALLOID G [Concomitant]
     Active Substance: SODIUM ALGINATE
     Indication: HEPATITIS FULMINANT
     Dosage: 20 ML, TID, SOL
     Route: 048
     Dates: start: 20140611
  11. PROHEPARUM [Concomitant]
     Active Substance: CHOLINE BITARTRATE\CYSTEINE\INOSITOL\MAMMAL LIVER
     Indication: HEPATITIS FULMINANT
     Dosage: 2 DF, TID
     Route: 048
     Dates: start: 20140613
  12. BAKTAR [Concomitant]
     Active Substance: SULFAMETHOXAZOLE\TRIMETHOPRIM
     Indication: PROPHYLAXIS
     Dosage: 480 MG, QID
     Route: 048
     Dates: start: 20140614
  13. MEROPEN [Concomitant]
     Active Substance: MEROPENEM
     Indication: HEPATITIS FULMINANT
     Dosage: 0.5 G, QD
     Route: 051
     Dates: start: 20140616

REACTIONS (2)
  - Renal impairment [Recovering/Resolving]
  - Hepatitis fulminant [Fatal]

NARRATIVE: CASE EVENT DATE: 2014
